FAERS Safety Report 4954052-0 (Version None)
Quarter: 2006Q1

REPORT INFORMATION
  Report Type: 
  Country: None (occurrence: None)
  Receive Date: 20060327
  Receipt Date: 20060317
  Transmission Date: 20060701
  Serious: Yes (Other)
  Sender: FDA-Public Use
  Company Number: PHFR2006GB01187

PATIENT
  Age: 78 Year
  Sex: Female

DRUGS (1)
  1. ESTRADERM TTS 25 [Suspect]
     Indication: HORMONE REPLACEMENT THERAPY
     Dosage: 25UG
     Route: 062
     Dates: end: 20060201

REACTIONS (5)
  - APPLICATION SITE IRRITATION [None]
  - APPLICATION SITE VESICLES [None]
  - DIVERTICULITIS [None]
  - GASTROINTESTINAL INFECTION [None]
  - MALAISE [None]
